FAERS Safety Report 4697651-6 (Version None)
Quarter: 2005Q2

REPORT INFORMATION
  Report Type: 
  Country: None (occurrence: None)
  Receive Date: 20050620
  Receipt Date: 20041118
  Transmission Date: 20051028
  Serious: Yes (Hospitalization, Other)
  Sender: FDA-Public Use
  Company Number: 200418926US

PATIENT
  Age: 82 Year
  Sex: Female

DRUGS (3)
  1. LANTUS [Suspect]
     Indication: DIABETES MELLITUS NON-INSULIN-DEPENDENT
     Dosage: 30 U HS INJ
     Dates: start: 20041113, end: 20041114
  2. INSULIN HUMAN [Concomitant]
  3. IRESSA [Concomitant]

REACTIONS (1)
  - HYPOGLYCAEMIA [None]
